FAERS Safety Report 7649034-4 (Version None)
Quarter: 2011Q3

REPORT INFORMATION
  Report Type: 
  Country: None (occurrence: None)
  Receive Date: 20110802
  Receipt Date: 20110726
  Transmission Date: 20111222
  Serious: Yes (Hospitalization)
  Sender: FDA-Public Use
  Company Number: JP-GENZYME-THYM-1002651

PATIENT
  Age: 22 Year
  Sex: Female
  Weight: 38 kg

DRUGS (2)
  1. THYMOGLOBULIN [Suspect]
     Indication: BONE MARROW CONDITIONING REGIMEN
     Dosage: 2.5 MG/KG, QD
     Route: 042
     Dates: start: 20110523, end: 20110524
  2. GANCICLOVIR [Concomitant]
     Indication: LYMPHADENOPATHY
     Dosage: UNK
     Route: 065
     Dates: start: 20110721

REACTIONS (1)
  - LYMPHADENOPATHY [None]
